FAERS Safety Report 6039518-7 (Version None)
Quarter: 2009Q1

REPORT INFORMATION
  Report Type: 
  Country: None (occurrence: None)
  Receive Date: 20090105
  Receipt Date: 20081222
  Transmission Date: 20090719
  Serious: Yes (Other)
  Sender: FDA-Public Use
  Company Number: AEUSA200800302

PATIENT
  Age: 84 Year
  Sex: Female
  Weight: 57.1532 kg

DRUGS (9)
  1. GAMUNEX [Suspect]
     Indication: HYPOGAMMAGLOBULINAEMIA
     Dosage: 25 GM; QM; IV
     Route: 042
     Dates: start: 20081215, end: 20081215
  2. APAP TAB [Concomitant]
  3. CALCIUM [Concomitant]
  4. CHONDROITIN SULFATE [Concomitant]
  5. CLONAZEPAM [Concomitant]
  6. GLUCOSAMINE [Concomitant]
  7. METAMUCIL /00091301/ [Concomitant]
  8. PAXIL [Concomitant]
  9. PREVACID [Concomitant]

REACTIONS (2)
  - ERYTHEMA [None]
  - PRURITUS [None]
